FAERS Safety Report 10177238 (Version 2)
Quarter: 2014Q2

REPORT INFORMATION
  Report Type: Report from Study
  Country: ES (occurrence: ES)
  Receive Date: 20140516
  Receipt Date: 20140516
  Transmission Date: 20141212
  Serious: Yes (Hospitalization)
  Sender: FDA-Public Use
  Company Number: ES-ABBVIE-14P-144-1230471-00

PATIENT
  Age: 62 Year
  Sex: Male
  Weight: 78 kg

DRUGS (8)
  1. HUMIRA [Suspect]
     Indication: PSORIASIS
     Route: 058
     Dates: start: 20090423
  2. ADIRO [Concomitant]
     Indication: ANGINA PECTORIS
     Dates: start: 20121123
  3. EMCONCOR [Concomitant]
     Indication: ANGINA PECTORIS
     Dates: start: 20121022
  4. UNIKET [Concomitant]
     Indication: ANGINA PECTORIS
     Dates: start: 20121123
  5. EZETIMIBA [Concomitant]
     Indication: ANGINA PECTORIS
     Dates: start: 20121123
  6. AMLODIPINO [Concomitant]
     Indication: ANGINA PECTORIS
     Dates: start: 20121123
  7. CAPTOPRIL [Concomitant]
     Indication: ANGINA PECTORIS
     Dates: start: 20121123
  8. METFORMIN [Concomitant]
     Indication: DIABETES MELLITUS
     Dates: start: 1995

REACTIONS (4)
  - Hypovolaemic shock [Recovered/Resolved]
  - Rotavirus infection [Recovered/Resolved]
  - Renal failure [Recovered/Resolved]
  - Metabolic acidosis [Recovered/Resolved]
